FAERS Safety Report 7580276-2 (Version None)
Quarter: 2011Q2

REPORT INFORMATION
  Report Type: 
  Country: None (occurrence: None)
  Receive Date: 20110629
  Receipt Date: 20110617
  Transmission Date: 20111010
  Serious: Yes (Other)
  Sender: FDA-Public Use
  Company Number: PT-CELGENEUS-130-21880-11062316

PATIENT
  Sex: Male

DRUGS (2)
  1. REVLIMID [Suspect]
     Indication: MYELOFIBROSIS
     Dosage: 10 MILLIGRAM
     Route: 048
  2. REVLIMID [Suspect]

REACTIONS (1)
  - RETINAL OEDEMA [None]
